FAERS Safety Report 20623632 (Version 1)
Quarter: 2022Q1

REPORT INFORMATION
  Report Type: Spontaneous
  Country: BD (occurrence: BD)
  Receive Date: 20220322
  Receipt Date: 20220322
  Transmission Date: 20220424
  Serious: Yes (Hospitalization, Other)
  Sender: FDA-Public Use
  Company Number: BD-AZURITY PHARMACEUTICALS, INC.-BD-2022ARB000739

PATIENT

DRUGS (1)
  1. BACLOFEN [Suspect]
     Active Substance: BACLOFEN
     Indication: Muscle spasms
     Dosage: 5 MILLIGRAM, SINGLE

REACTIONS (1)
  - Neurotoxicity [Recovering/Resolving]
